FAERS Safety Report 6136895-3 (Version None)
Quarter: 2009Q1

REPORT INFORMATION
  Report Type: 
  Country: None (occurrence: None)
  Receive Date: 20090330
  Receipt Date: 20090317
  Transmission Date: 20090719
  Serious: Yes (Hospitalization)
  Sender: FDA-Public Use
  Company Number: US-AVENTIS-200817702US

PATIENT
  Sex: Female

DRUGS (6)
  1. KETEK [Suspect]
     Dosage: DOSE: UNK
     Dates: start: 20051101
  2. ISONIAZID [Suspect]
     Dosage: DOSE: UNK
     Route: 048
     Dates: start: 20051001
  3. NEXIUM [Concomitant]
     Dosage: DOSE: UNK
  4. ALLEGRA [Concomitant]
     Dosage: DOSE: UNK
  5. VERAPAMIL ER [Concomitant]
  6. ZOLOFT [Concomitant]
     Route: 048

REACTIONS (12)
  - ABDOMINAL PAIN [None]
  - ABDOMINAL PAIN UPPER [None]
  - ALANINE AMINOTRANSFERASE INCREASED [None]
  - ASPARTATE AMINOTRANSFERASE INCREASED [None]
  - BLOOD ALKALINE PHOSPHATASE INCREASED [None]
  - BLOOD BILIRUBIN INCREASED [None]
  - DEHYDRATION [None]
  - HEPATITIS [None]
  - NAUSEA [None]
  - OCULAR ICTERUS [None]
  - VOMITING [None]
  - WEIGHT DECREASED [None]
